FAERS Safety Report 7367093-3 (Version None)
Quarter: 2011Q1

REPORT INFORMATION
  Report Type: 
  Country: None (occurrence: None)
  Receive Date: 20110322
  Receipt Date: 20110310
  Transmission Date: 20110831
  Serious: Yes (Other)
  Sender: FDA-Public Use
  Company Number: FR-JNJFOC-20110306485

PATIENT
  Age: 44 Year
  Sex: Female

DRUGS (4)
  1. NICORETTE MICROTAB [Suspect]
     Indication: SMOKING CESSATION THERAPY
     Dosage: 20 TABLETS DAILY
     Route: 048
  2. NICORETTE MICROTAB [Suspect]
     Dosage: 20 TABLETS DAILY
     Route: 048
  3. NICORETTE MICROTAB [Suspect]
     Dosage: 15 TABLETS DAILY
     Route: 048
  4. NICORETTE MICROTAB [Suspect]
     Dosage: 15 TABLETS DAILY
     Route: 048

REACTIONS (2)
  - DEPENDENCE [None]
  - INCORRECT DRUG ADMINISTRATION DURATION [None]
